FAERS Safety Report 7369911-1 (Version None)
Quarter: 2011Q1

REPORT INFORMATION
  Report Type: 
  Country: None (occurrence: None)
  Receive Date: 20110323
  Receipt Date: 20110315
  Transmission Date: 20110831
  Serious: Yes (Death)
  Sender: FDA-Public Use
  Company Number: FR-CELGENEUS-056-C5013-11022969

PATIENT
  Sex: Male
  Weight: 82 kg

DRUGS (8)
  1. FLUINDIONE [Concomitant]
     Dosage: 20 MILLIGRAM
     Route: 065
     Dates: start: 20110211
  2. PREDNISONE [Suspect]
     Indication: PROSTATE CANCER
     Dosage: 5 MILLIGRAM
     Route: 065
     Dates: start: 20110211, end: 20110218
  3. ZOMETA [Concomitant]
     Route: 065
  4. ATACAND [Concomitant]
     Indication: HYPERTENSION
     Route: 065
  5. LENALIDOMIDE [Suspect]
     Indication: PROSTATE CANCER
     Dosage: 25 MILLIGRAM
     Route: 048
     Dates: start: 20110211, end: 20110218
  6. ZOLADEX [Concomitant]
     Route: 065
  7. DOCETAXEL [Suspect]
     Indication: PROSTATE CANCER
     Dosage: 130 MILLIGRAM
     Route: 065
     Dates: start: 20110211, end: 20110211
  8. CALCIT VIT D [Concomitant]
     Route: 065

REACTIONS (14)
  - NEUTROPENIA [None]
  - RENAL IMPAIRMENT [None]
  - INTERNATIONAL NORMALISED RATIO INCREASED [None]
  - HYPOXIA [None]
  - DISSEMINATED INTRAVASCULAR COAGULATION [None]
  - RALES [None]
  - INTESTINAL INFARCTION [None]
  - DIALYSIS [None]
  - INFLAMMATION [None]
  - CARDIO-RESPIRATORY ARREST [None]
  - SHOCK [None]
  - RHABDOMYOLYSIS [None]
  - METABOLIC ACIDOSIS [None]
  - MULTI-ORGAN FAILURE [None]
